FAERS Safety Report 9320631 (Version 2)
Quarter: 2013Q2

REPORT INFORMATION
  Report Type: Spontaneous
  Country: FR (occurrence: FR)
  Receive Date: 20130531
  Receipt Date: 20130626
  Transmission Date: 20140414
  Serious: Yes (Other)
  Sender: FDA-Public Use
  Company Number: FR-ROCHE-1230080

PATIENT
  Age: 65 Year
  Sex: Male

DRUGS (10)
  1. VALIUM [Suspect]
     Indication: AGITATION
     Route: 042
     Dates: start: 20130405, end: 20130405
  2. ZOLOFT [Suspect]
     Indication: DEPRESSION
     Route: 048
  3. LAROSCORBINE [Suspect]
     Indication: HYPOVITAMINOSIS
     Route: 048
     Dates: start: 20130405, end: 20130410
  4. ZOLPIDEM [Suspect]
     Indication: PRODUCT USED FOR UNKNOWN INDICATION
     Route: 048
     Dates: start: 20130405
  5. TEGRETOL [Concomitant]
     Indication: EPILEPSY
     Route: 048
  6. MECIR [Concomitant]
     Indication: PROSTATITIS
     Route: 048
  7. LOVENOX [Concomitant]
     Route: 058
  8. HEPT-A-MYL [Concomitant]
     Route: 048
  9. NOCTAMIDE [Concomitant]
     Route: 048
  10. SERESTA [Concomitant]
     Route: 048

REACTIONS (2)
  - Neutropenia [Recovered/Resolved]
  - Lymphopenia [Not Recovered/Not Resolved]
